FAERS Safety Report 13528923 (Version 3)
Quarter: 2017Q4

REPORT INFORMATION
  Report Type: Report from Study
  Country: US (occurrence: US)
  Receive Date: 20170509
  Receipt Date: 20171228
  Transmission Date: 20180320
  Serious: Yes (Hospitalization, Other)
  Sender: FDA-Public Use
  Company Number: US-ACTELION-A-NJ2017-147893

PATIENT
  Age: 28 Month
  Sex: Female

DRUGS (9)
  1. SPIRONOLACTONE. [Concomitant]
     Active Substance: SPIRONOLACTONE
  2. KEPPRA [Concomitant]
     Active Substance: LEVETIRACETAM
  3. PULMICORT TURBUHALER [Concomitant]
     Active Substance: BUDESONIDE
  4. TRACLEER [Suspect]
     Active Substance: BOSENTAN
     Indication: PULMONARY HYPERTENSION
     Dosage: 31.25 MG, BID
     Route: 048
     Dates: start: 20160825, end: 20170928
  5. LASIX [Concomitant]
     Active Substance: FUROSEMIDE
  6. REVATIO [Concomitant]
     Active Substance: SILDENAFIL CITRATE
  7. TRACLEER [Suspect]
     Active Substance: BOSENTAN
     Dosage: 15.625 MG, BID
     Route: 048
     Dates: start: 20160929, end: 20170501
  8. ASPIRIN. [Concomitant]
     Active Substance: ASPIRIN
  9. MONTELUKAST SODIUM. [Concomitant]
     Active Substance: MONTELUKAST SODIUM

REACTIONS (7)
  - Alanine aminotransferase increased [Recovering/Resolving]
  - Vomiting [Unknown]
  - Cerebrovascular accident [Unknown]
  - Aspartate aminotransferase increased [Recovering/Resolving]
  - Blood alkaline phosphatase increased [Recovering/Resolving]
  - Seizure [Recovered/Resolved]
  - Liver function test increased [Recovering/Resolving]

NARRATIVE: CASE EVENT DATE: 20170320
